FAERS Safety Report 11038001 (Version 2)
Quarter: 2015Q2

REPORT INFORMATION
  Report Type: Spontaneous
  Country: US (occurrence: US)
  Receive Date: 20150416
  Receipt Date: 20150506
  Transmission Date: 20150821
  Serious: Yes (Death, Other)
  Sender: FDA-Public Use
  Company Number: US-GILEAD-2015-0148950

PATIENT
  Age: 60 Year
  Sex: Female
  Weight: 70 kg

DRUGS (9)
  1. VITAMIN B12 [Concomitant]
     Active Substance: CYANOCOBALAMIN
     Dosage: 1000 MCG/ML
     Route: 058
     Dates: start: 20141013
  2. LORAZEPAM. [Concomitant]
     Active Substance: LORAZEPAM
     Dosage: 1 MG, PRN EACH EVENING
     Route: 065
     Dates: start: 20141013
  3. NEXIUM [Concomitant]
     Active Substance: ESOMEPRAZOLE MAGNESIUM
     Dosage: 20 MG, QD
     Route: 048
     Dates: start: 20141222
  4. BENADRYL [Concomitant]
     Active Substance: DIPHENHYDRAMINE HYDROCHLORIDE
     Dosage: 1 DF, QHS
     Route: 065
  5. ACYCLOVIR                          /00587301/ [Concomitant]
     Active Substance: ACYCLOVIR
     Dosage: 400 MG, BID
     Route: 048
     Dates: start: 20150113
  6. HARVONI [Suspect]
     Active Substance: LEDIPASVIR\SOFOSBUVIR
     Indication: CHRONIC HEPATITIS C
     Dosage: UNK
     Route: 065
     Dates: start: 20150108
  7. HYDROCODONE [Concomitant]
     Active Substance: HYDROCODONE
     Dosage: 10/325 MG-1 DF, PRN UP TO 4 TIMES DIALY
     Route: 048
     Dates: start: 20150113
  8. ESCITALOPRAM [Concomitant]
     Active Substance: ESCITALOPRAM OXALATE
     Dosage: 10 MG, QD
     Route: 048
     Dates: start: 20150113
  9. VOLTAREN [Concomitant]
     Active Substance: DICLOFENAC SODIUM
     Dosage: 1 %, QD
     Route: 061
     Dates: start: 20141013

REACTIONS (6)
  - Night sweats [Unknown]
  - Toothache [Unknown]
  - Bruxism [Unknown]
  - Headache [Unknown]
  - Cerebral haemorrhage [Fatal]
  - Gingival recession [Unknown]

NARRATIVE: CASE EVENT DATE: 201501
